FAERS Safety Report 7963344-2 (Version None)
Quarter: 2011Q4

REPORT INFORMATION
  Report Type: 
  Country: None (occurrence: None)
  Receive Date: 20111208
  Receipt Date: 20111130
  Transmission Date: 20120403
  Serious: Yes (Hospitalization, Other)
  Sender: FDA-Public Use
  Company Number: GB-PAR PHARMACEUTICAL, INC-2011SCPR003445

PATIENT

DRUGS (10)
  1. METRONIDAZOLE [Suspect]
     Indication: WOUND INFECTION
     Dosage: 400 MG, TID
     Route: 048
  2. TACROLIMUS [Concomitant]
     Indication: IMMUNOSUPPRESSANT DRUG THERAPY
     Dosage: UNK, UNKNOWN
     Route: 065
  3. COTRIM [Concomitant]
     Indication: INFECTION PROPHYLAXIS
     Dosage: UNK, UNKNOWN
     Route: 048
  4. DOXYCYCLINE [Concomitant]
     Indication: INFECTION PROPHYLAXIS
     Dosage: UNK, UNKNOWN
     Route: 048
  5. MYCOPHENOLATE MOFETIL [Concomitant]
     Indication: IMMUNOSUPPRESSANT DRUG THERAPY
     Dosage: UNK, UNKNOWN
     Route: 065
  6. MEROPENEM [Concomitant]
     Indication: KLEBSIELLA INFECTION
     Dosage: 500 MG, BID
  7. PREDNISOLONE [Concomitant]
     Indication: IMMUNOSUPPRESSANT DRUG THERAPY
     Dosage: UNK, UNKNOWN
     Route: 065
  8. NYSTATIN [Concomitant]
     Indication: INFECTION PROPHYLAXIS
     Dosage: UNK, UNKNOWN
     Route: 048
  9. VALGANCICLOVIR [Concomitant]
     Indication: INFECTION PROPHYLAXIS
     Dosage: UNK, UNKNOWN
     Route: 048
  10. AMIKACIN [Concomitant]
     Indication: KLEBSIELLA INFECTION
     Dosage: 150 MG, BID

REACTIONS (3)
  - CEREBELLAR ATAXIA [None]
  - CENTRAL NERVOUS SYSTEM LESION [None]
  - NEUROTOXICITY [None]
